FAERS Safety Report 6493711-8 (Version None)
Quarter: 2009Q4

REPORT INFORMATION
  Report Type: 
  Country: None (occurrence: None)
  Receive Date: 20091214
  Receipt Date: 20091207
  Transmission Date: 20100525
  Serious: Yes (Other)
  Sender: FDA-Public Use
  Company Number: US-BAYER-200942131NA

PATIENT
  Age: 32 Year
  Sex: Female
  Weight: 68 kg

DRUGS (3)
  1. ULTRAVIST 300 [Suspect]
     Indication: COMPUTERISED TOMOGRAM ABDOMEN
     Dosage: TOTAL DAILY DOSE: 105 ML  UNIT DOSE: 200 ML
     Route: 042
     Dates: start: 20091201, end: 20091201
  2. LOESTRIN 1.5/30 [Concomitant]
  3. READI-CAT [Concomitant]

REACTIONS (1)
  - THROAT TIGHTNESS [None]
